FAERS Safety Report 5088149-4 (Version None)
Quarter: 2006Q3

REPORT INFORMATION
  Report Type: 
  Country: None (occurrence: None)
  Receive Date: 20060727
  Receipt Date: 20060414
  Transmission Date: 20061208
  Serious: Yes (Other)
  Sender: FDA-Public Use
  Company Number: 2006012737

PATIENT
  Age: 86 Year
  Sex: Female
  Weight: 77.1115 kg

DRUGS (10)
  1. LYRICA [Suspect]
     Indication: PAIN
     Dosage: (75 MG)
     Dates: start: 20051001
  2. LYRICA [Suspect]
     Indication: SCIATICA
     Dosage: (75 MG)
     Dates: start: 20051001
  3. VASOTEC [Concomitant]
  4. CALAN [Concomitant]
  5. DYAZIDE [Concomitant]
  6. LIPITOR [Concomitant]
  7. NEXIUM [Concomitant]
  8. VITAMIN E [Concomitant]
  9. DAILY VITAMINS (VITAMINS NOS) [Concomitant]
  10. CALCIUM WITH VITAMIN D (CALCIUM PHOSPHATE, CALCIUM SODIUM LACTATE, ERG [Concomitant]

REACTIONS (8)
  - DIZZINESS [None]
  - DRUG INEFFECTIVE [None]
  - FEAR [None]
  - HAEMOGLOBIN DECREASED [None]
  - MALAISE [None]
  - MOBILITY DECREASED [None]
  - OEDEMA PERIPHERAL [None]
  - PAIN [None]
